FAERS Safety Report 16663238 (Version 3)
Quarter: 2019Q3

REPORT INFORMATION
  Report Type: Spontaneous
  Country: ES (occurrence: ES)
  Receive Date: 20190802
  Receipt Date: 20190925
  Transmission Date: 20191004
  Serious: No
  Sender: FDA-Public Use
  Company Number: ES-ASTRAZENECA-2019SF09381

PATIENT
  Age: 38 Year
  Sex: Female
  Weight: 63 kg

DRUGS (6)
  1. LYNPARZA [Suspect]
     Active Substance: OLAPARIB
     Indication: OVARIAN CANCER
     Route: 048
     Dates: start: 20190731
  2. POLARAMINE [Suspect]
     Active Substance: DEXCHLORPHENIRAMINE MALEATE
     Indication: URTICARIA
     Route: 042
     Dates: start: 20190731
  3. LYNPARZA [Suspect]
     Active Substance: OLAPARIB
     Indication: OVARIAN CANCER
     Route: 048
     Dates: start: 20190716, end: 20190716
  4. URBASON [Suspect]
     Active Substance: METHYLPREDNISOLONE
     Indication: URTICARIA
     Route: 065
     Dates: start: 20190731
  5. POLARAMINE [Suspect]
     Active Substance: DEXCHLORPHENIRAMINE MALEATE
     Indication: URTICARIA
     Route: 042
     Dates: start: 20190716
  6. URBASON [Suspect]
     Active Substance: METHYLPREDNISOLONE
     Indication: URTICARIA
     Route: 065
     Dates: start: 20190716

REACTIONS (3)
  - Product use in unapproved indication [Unknown]
  - Urticaria [Recovering/Resolving]
  - Drug ineffective [Unknown]

NARRATIVE: CASE EVENT DATE: 20190716
